FAERS Safety Report 9964938 (Version 2)
Quarter: 2014Q1

REPORT INFORMATION
  Report Type: Spontaneous
  Country: IT (occurrence: IT)
  Receive Date: 20140305
  Receipt Date: 20140321
  Transmission Date: 20141002
  Serious: Yes (Other)
  Sender: FDA-Public Use
  Company Number: PHHY2014IT024598

PATIENT
  Age: 32 Year
  Sex: Female

DRUGS (3)
  1. VOLTAREN [Suspect]
     Indication: BACK PAIN
     Dosage: UNK UKN, UNK
     Route: 030
     Dates: start: 20131219, end: 20131227
  2. TRAMADOL [Suspect]
     Indication: BACK PAIN
     Dosage: UNK UKN, UNK
     Route: 048
     Dates: start: 20131219, end: 20131227
  3. PROTON PUMP INHIBITORS [Concomitant]
     Dosage: UNK UKN, UNK

REACTIONS (1)
  - Gastritis [Recovering/Resolving]
